FAERS Safety Report 14241928 (Version 2)
Quarter: 2018Q1

REPORT INFORMATION
  Report Type: Spontaneous
  Country: JP (occurrence: JP)
  Receive Date: 20171201
  Receipt Date: 20180116
  Transmission Date: 20180508
  Serious: Yes (Other)
  Sender: FDA-Public Use
  Company Number: JP-ABBVIE-17P-087-2175629-00

PATIENT
  Age: 39 Year
  Sex: Female

DRUGS (3)
  1. POPSCAINE [Suspect]
     Active Substance: LEVOBUPIVACAINE HYDROCHLORIDE
     Indication: POSTOPERATIVE ANALGESIA
     Dosage: 4 ML/HR (100 ML IN TOTAL AFTER SURGERY)
     Route: 008
     Dates: start: 20171028, end: 20171029
  2. LIDOCAINE. [Concomitant]
     Active Substance: LIDOCAINE
     Indication: EPIDURAL TEST DOSE
     Route: 065
  3. MARCAIN SPINAL 0.5% [Concomitant]
     Indication: SPINAL ANAESTHESIA
     Route: 065
     Dates: start: 20171028, end: 20171028

REACTIONS (2)
  - Sensory disturbance [Not Recovered/Not Resolved]
  - Muscular weakness [Not Recovered/Not Resolved]

NARRATIVE: CASE EVENT DATE: 20171029
